FAERS Safety Report 4829798-5 (Version None)
Quarter: 2005Q4

REPORT INFORMATION
  Report Type: 
  Country: None (occurrence: None)
  Receive Date: 20051028
  Receipt Date: 20050714
  Transmission Date: 20060501
  Serious: No
  Sender: FDA-Public Use
  Company Number: COT_0134_2005

PATIENT
  Age: 55 Year
  Sex: Male
  Weight: 75 kg

DRUGS (8)
  1. VENTAVIS [Suspect]
     Indication: PULMONARY HYPERTENSION
     Dosage: 5 MCG 6XD IH
     Route: 055
     Dates: start: 20050730
  2. RENAGEL [Concomitant]
  3. OXYCONTIN [Concomitant]
  4. OXYGEN [Concomitant]
  5. MOTRIN [Concomitant]
  6. GOODYS POWDERS [Concomitant]
  7. SENSIPAR/CINACACLET [Concomitant]
  8. NEXIUM [Concomitant]

REACTIONS (3)
  - COUGH [None]
  - EYE PAIN [None]
  - HEADACHE [None]
